FAERS Safety Report 8434756-8 (Version None)
Quarter: 2012Q2

REPORT INFORMATION
  Report Type: 
  Country: None (occurrence: None)
  Receive Date: 20120608
  Receipt Date: 20120608
  Transmission Date: 20120825
  Serious: Yes (Other)
  Sender: FDA-Public Use
  Company Number: None

PATIENT
  Age: 54 Year
  Sex: Male
  Weight: 65.7716 kg

DRUGS (1)
  1. CVS PHARMACY RUBBING ALCOHOL VI-JON, INC [Suspect]
     Dates: start: 20120516, end: 20120516

REACTIONS (3)
  - PRODUCT ODOUR ABNORMAL [None]
  - RASH [None]
  - ERYTHEMA [None]
